FAERS Safety Report 5220718-0 (Version None)
Quarter: 2007Q1

REPORT INFORMATION
  Report Type: 
  Country: None (occurrence: None)
  Receive Date: 20070125
  Receipt Date: 20070125
  Transmission Date: 20070707
  Serious: Yes (Hospitalization)
  Sender: FDA-Public Use
  Company Number: None

PATIENT
  Sex: Male
  Weight: 76.34 kg

DRUGS (6)
  1. CYCLOPHOSPHAMIDE [Suspect]
     Dosage: 1470 MG
  2. DOXORUBICIN HYDROCHLORIDE [Suspect]
     Dosage: 76 MG
  3. ETOPOSIDE [Suspect]
     Dosage: 392 MG
  4. PREDNISONE [Suspect]
     Dosage: 600 MG
  5. RITUXIMAB (MOAB C2B8 ANTI CD20, CHIMERIC) [Suspect]
     Dosage: 735 MG
  6. VINCRISTINE SULFATE [Suspect]
     Dosage: 3.2 MG

REACTIONS (10)
  - ATRIAL FIBRILLATION [None]
  - ATRIAL FLUTTER [None]
  - CONSTIPATION [None]
  - FEBRILE NEUTROPENIA [None]
  - HYPERBILIRUBINAEMIA [None]
  - NAUSEA [None]
  - RENAL FAILURE ACUTE [None]
  - SEPTIC SHOCK [None]
  - VOMITING [None]
  - WHITE BLOOD CELL COUNT DECREASED [None]
